FAERS Safety Report 6619764-1 (Version None)
Quarter: 2010Q1

REPORT INFORMATION
  Report Type: 
  Country: None (occurrence: None)
  Receive Date: 20100309
  Receipt Date: 20100305
  Transmission Date: 20100710
  Serious: Yes (Hospitalization, Other)
  Sender: FDA-Public Use
  Company Number: DE-BAYER-201018171GPV

PATIENT
  Age: 64 Year
  Sex: Male
  Weight: 82 kg

DRUGS (3)
  1. SORAFENIB [Suspect]
     Indication: RENAL CELL CARCINOMA
     Dosage: TOTAL DAILY DOSE: 800 MG
     Route: 048
     Dates: start: 20100209, end: 20100220
  2. RAMIPRIL [Concomitant]
     Indication: HYPERTENSION
     Dates: start: 20080701
  3. LOPERAMIDE [Concomitant]
     Indication: PROPHYLAXIS
     Dates: start: 20100215

REACTIONS (2)
  - ARRHYTHMIA [None]
  - FATIGUE [None]
